FAERS Safety Report 17235684 (Version 2)
Quarter: 2020Q1

REPORT INFORMATION
  Report Type: Report from Study
  Country: CN (occurrence: CN)
  Receive Date: 20200106
  Receipt Date: 20200107
  Transmission Date: 20200409
  Serious: No
  Sender: FDA-Public Use
  Company Number: CN-UCBSA-2019056870

PATIENT

DRUGS (3)
  1. ALPROSTADIL. [Suspect]
     Active Substance: ALPROSTADIL
     Indication: OFF LABEL USE
  2. ALPROSTADIL. [Suspect]
     Active Substance: ALPROSTADIL
     Indication: LIVER INJURY
     Dosage: 1-2 ML/TIME (5-10 MICROGRAM), AFTER DILUTED BY 100 ML OF 0.9% SODIUM CHLORIDE INJECTION
     Route: 042
  3. ADEMETIONINE 1,4-BUTANEDISULFONATE [Concomitant]
     Indication: LIVER INJURY
     Dosage: 1000 MG/TIME, AFTER DILUTED BY 100 ML OF 0.9% SODIUM CHLORIDE INJECTION
     Route: 042

REACTIONS (4)
  - Headache [Unknown]
  - Off label use [Unknown]
  - Wrong technique in product usage process [Unknown]
  - Injection site pain [Recovered/Resolved]
